FAERS Safety Report 6793534-6 (Version None)
Quarter: 2010Q2

REPORT INFORMATION
  Report Type: 
  Country: None (occurrence: None)
  Receive Date: 20100624
  Receipt Date: 20081212
  Transmission Date: 20101027
  Serious: No
  Sender: FDA-Public Use
  Company Number: US-PFIZER INC-2008155307

PATIENT
  Sex: Female

DRUGS (2)
  1. XALEASE [Suspect]
     Dates: start: 20080101
  2. XALATAN [Suspect]
     Indication: GLAUCOMA
     Dosage: FREQUENCY: QHS, EVERY DAY;
     Dates: start: 20080101

REACTIONS (2)
  - CIRCUMSTANCE OR INFORMATION CAPABLE OF LEADING TO MEDICATION ERROR [None]
  - DRUG ADMINISTRATION ERROR [None]
